FAERS Safety Report 18256785 (Version 1)
Quarter: 2020Q3

REPORT INFORMATION
  Report Type: Spontaneous
  Country: US (occurrence: US)
  Receive Date: 20200910
  Receipt Date: 20200910
  Transmission Date: 20201103
  Serious: Yes (Life-Threatening, Hospitalization, Disabling)
  Sender: FDA-Public Use
  Company Number: None

PATIENT
  Age: 30 Year
  Sex: Male
  Weight: 77.4 kg

DRUGS (1)
  1. CLONAZEPAM. [Suspect]
     Active Substance: CLONAZEPAM
     Indication: ANXIETY
     Dates: start: 20120303, end: 20200229

REACTIONS (21)
  - Mydriasis [None]
  - Night sweats [None]
  - Fatigue [None]
  - Cognitive disorder [None]
  - Suicidal ideation [None]
  - Tachycardia [None]
  - Formication [None]
  - Feeling hot [None]
  - Psychotic disorder [None]
  - Drug dependence [None]
  - Toothache [None]
  - Dysgeusia [None]
  - Depression [None]
  - Pain in extremity [None]
  - Depersonalisation/derealisation disorder [None]
  - Visual impairment [None]
  - Disability [None]
  - Insomnia [None]
  - Neuralgia [None]
  - Hypertension [None]
  - Feeling cold [None]

NARRATIVE: CASE EVENT DATE: 20200229
